FAERS Safety Report 14378848 (Version 3)
Quarter: 2018Q2

REPORT INFORMATION
  Report Type: Report from Study
  Country: CA (occurrence: CA)
  Receive Date: 20180112
  Receipt Date: 20180502
  Transmission Date: 20180711
  Serious: Yes (Other)
  Sender: FDA-Public Use
  Company Number: CA-ROCHE-2051589

PATIENT
  Age: 53 Year
  Sex: Male

DRUGS (9)
  1. SPIROLACTONE [Concomitant]
     Active Substance: SPIRONOLACTONE
     Route: 065
  2. PLAQUENIL [Concomitant]
     Active Substance: HYDROXYCHLOROQUINE SULFATE
     Route: 065
  3. COLCHICINE. [Concomitant]
     Active Substance: COLCHICINE
     Route: 065
  4. UNIPHYL [Concomitant]
     Active Substance: THEOPHYLLINE ANHYDROUS
     Dosage: AT HS
     Route: 065
  5. ACTEMRA [Suspect]
     Active Substance: TOCILIZUMAB
     Indication: POLYCHONDRITIS
     Dosage: EVERY OTHER WEEK
     Route: 058
     Dates: start: 20171022
  6. SLOW K [Concomitant]
     Active Substance: POTASSIUM CHLORIDE
     Dosage: 2 TABLETS
     Route: 065
  7. METHOTREXATE. [Concomitant]
     Active Substance: METHOTREXATE
     Route: 058
  8. FOLIC ACID. [Concomitant]
     Active Substance: FOLIC ACID
     Route: 065
  9. PREDNISONE. [Concomitant]
     Active Substance: PREDNISONE
     Route: 065

REACTIONS (2)
  - Secretion discharge [Not Recovered/Not Resolved]
  - Genital swelling [Not Recovered/Not Resolved]

NARRATIVE: CASE EVENT DATE: 201712
